FAERS Safety Report 5533482-2 (Version None)
Quarter: 2007Q4

REPORT INFORMATION
  Report Type: 
  Country: None (occurrence: None)
  Receive Date: 20071204
  Receipt Date: 20071126
  Transmission Date: 20080405
  Serious: Yes (Other)
  Sender: FDA-Public Use
  Company Number: FR-BRISTOL-MYERS SQUIBB COMPANY-13865191

PATIENT
  Age: 1 Day
  Sex: Female
  Weight: 3 kg

DRUGS (4)
  1. ABILIFY [Suspect]
     Route: 064
  2. NORMISON [Suspect]
     Route: 064
  3. ZOLOFT [Suspect]
     Route: 064
  4. BENZODIAZEPINE [Concomitant]
     Route: 064

REACTIONS (4)
  - AGITATION [None]
  - FOETAL GROWTH RETARDATION [None]
  - MICROCEPHALY [None]
  - PREGNANCY [None]
